FAERS Safety Report 6290640-X (Version None)
Quarter: 2009Q3

REPORT INFORMATION
  Report Type: 
  Country: None (occurrence: None)
  Receive Date: 20090730
  Receipt Date: 20090720
  Transmission Date: 20100115
  Serious: Yes (Other)
  Sender: FDA-Public Use
  Company Number: PHEH2008US10479

PATIENT
  Sex: Female

DRUGS (2)
  1. AREDIA [Suspect]
     Indication: MULTIPLE MYELOMA
     Dosage: EVERY MONTH
  2. ZOMETA [Suspect]

REACTIONS (3)
  - INFECTION [None]
  - OSTEONECROSIS [None]
  - TOOTH EXTRACTION [None]
